FAERS Safety Report 6505131-8 (Version None)
Quarter: 2009Q4

REPORT INFORMATION
  Report Type: 
  Country: None (occurrence: None)
  Receive Date: 20091218
  Receipt Date: 20091209
  Transmission Date: 20100525
  Serious: Yes (Other)
  Sender: FDA-Public Use
  Company Number: PHEH2009US16059

PATIENT
  Sex: Male
  Weight: 92.063 kg

DRUGS (9)
  1. RECLAST [Suspect]
     Indication: OSTEOPOROSIS
     Dosage: UNK
     Route: 042
     Dates: start: 20080505
  2. RECLAST [Suspect]
     Dosage: 5 MG YEARLY
     Route: 042
     Dates: start: 20090602
  3. REGLAN [Concomitant]
     Dosage: UNK
     Route: 048
  4. ALPRAZOLAM [Concomitant]
     Dosage: 1 MG, BID
     Route: 048
     Dates: start: 20091209
  5. CALCIUM WITH VITAMIN D [Concomitant]
     Dosage: 1 TABLET DAILY
     Dates: start: 20081210
  6. FERROUS SULFATE TAB [Concomitant]
     Dosage: 325 MG, QD
     Dates: start: 20081210
  7. MULTI-VITAMINS [Concomitant]
     Route: 048
  8. PROTONIX [Concomitant]
     Dosage: 40 MG, BID
     Route: 048
  9. PROZAC [Concomitant]
     Dosage: 10 MG, QD
     Route: 048

REACTIONS (2)
  - JOINT DISLOCATION [None]
  - PAIN IN JAW [None]
